FAERS Safety Report 19847010 (Version 1)
Quarter: 2021Q3

REPORT INFORMATION
  Report Type: Spontaneous
  Country: CA (occurrence: CA)
  Receive Date: 20210917
  Receipt Date: 20210917
  Transmission Date: 20211014
  Serious: Yes (Death)
  Sender: FDA-Public Use
  Company Number: CA-TEVA-2021-CA-1952691

PATIENT
  Age: 13 Year
  Sex: Male

DRUGS (8)
  1. DOMPERIDONE [Suspect]
     Active Substance: DOMPERIDONE
     Indication: QUADRIPLEGIA
     Route: 065
  2. LACTULOSE SYRUP [Suspect]
     Active Substance: LACTULOSE
     Indication: QUADRIPLEGIA
     Route: 065
  3. LACTULOSE SYRUP [Suspect]
     Active Substance: LACTULOSE
     Indication: CEREBRAL PALSY
  4. OMEPRAZOLE. [Suspect]
     Active Substance: OMEPRAZOLE
     Indication: CEREBRAL PALSY
  5. BOTOX [Suspect]
     Active Substance: ONABOTULINUMTOXINA
     Indication: QUADRIPLEGIA
     Route: 065
  6. OMEPRAZOLE. [Suspect]
     Active Substance: OMEPRAZOLE
     Indication: QUADRIPLEGIA
     Route: 065
  7. BOTOX [Suspect]
     Active Substance: ONABOTULINUMTOXINA
     Indication: CEREBRAL PALSY
  8. DOMPERIDONE [Suspect]
     Active Substance: DOMPERIDONE
     Indication: CEREBRAL PALSY

REACTIONS (3)
  - Asthenia [Fatal]
  - Aspiration [Fatal]
  - Dyspnoea [Fatal]
